FAERS Safety Report 7284952-0 (Version None)
Quarter: 2011Q1

REPORT INFORMATION
  Report Type: 
  Country: None (occurrence: None)
  Receive Date: 20110204
  Receipt Date: 20110204
  Transmission Date: 20110831
  Serious: Yes (Death)
  Sender: FDA-Public Use
  Company Number: None

PATIENT
  Age: 83 Year
  Sex: Female
  Weight: 72 kg

DRUGS (1)
  1. ALTEPLASE 100MG WITH 100ML DILUENT PROVIDED GENENTECH [Suspect]
     Indication: ISCHAEMIC STROKE
     Dosage: SEE IMAGE
     Route: 042
     Dates: start: 20110113

REACTIONS (6)
  - MENTAL STATUS CHANGES [None]
  - HAEMORRHAGE INTRACRANIAL [None]
  - AGITATION [None]
  - AGGRESSION [None]
  - SPEECH DISORDER [None]
  - SOMNOLENCE [None]
